FAERS Safety Report 6273829-5 (Version None)
Quarter: 2009Q3

REPORT INFORMATION
  Report Type: 
  Country: None (occurrence: None)
  Receive Date: 20090720
  Receipt Date: 20090708
  Transmission Date: 20100115
  Serious: Yes (Other)
  Sender: FDA-Public Use
  Company Number: JP-PFIZER INC-2009238974

PATIENT
  Age: 72 Year

DRUGS (6)
  1. FARMORUBICIN [Suspect]
     Indication: HEPATIC NEOPLASM MALIGNANT
     Dosage: 40 MG, 1X/DAY
     Route: 013
     Dates: start: 20081021
  2. LIPIODOL ULTRA-FLUID [Suspect]
     Indication: HEPATIC NEOPLASM MALIGNANT
     Dosage: 10 ML, 1X/DAY
     Route: 013
     Dates: start: 20081021
  3. OPTIRAY 350 [Suspect]
     Indication: ANGIOGRAM
     Dosage: 110 ML, 1X/DAY
     Route: 013
     Dates: start: 20081021
  4. CRAVIT [Suspect]
     Indication: PROPHYLAXIS
     Dosage: 200 MG, 1X/DAY
     Route: 048
     Dates: start: 20081021
  5. PANSPORIN [Suspect]
     Indication: PROPHYLAXIS
     Dosage: 1 G, 1X/DAY
     Route: 042
     Dates: start: 20081021
  6. ROPION [Suspect]
     Indication: POSTOPERATIVE ANALGESIA
     Dosage: 50 MG, 1X/DAY
     Route: 042
     Dates: start: 20081021

REACTIONS (5)
  - ABNORMAL SENSATION IN EYE [None]
  - CONVULSION [None]
  - MYODESOPSIA [None]
  - SCINTILLATING SCOTOMA [None]
  - VISUAL IMPAIRMENT [None]
